FAERS Safety Report 8046390-2 (Version None)
Quarter: 2012Q1

REPORT INFORMATION
  Report Type: 
  Country: None (occurrence: None)
  Receive Date: 20120113
  Receipt Date: 20120104
  Transmission Date: 20120608
  Serious: Yes (Hospitalization, Other)
  Sender: FDA-Public Use
  Company Number: GB-PFIZER INC-2012003200

PATIENT
  Age: 55 Year
  Sex: Male
  Weight: 101.6 kg

DRUGS (9)
  1. RAMIPRIL [Suspect]
     Indication: HYPERTENSION
     Dosage: 5 MG, 1X/DAY
  2. SALBUTAMOL [Concomitant]
  3. SYMBICORT [Concomitant]
  4. TERBUTALINE [Concomitant]
  5. TIOTROPIUM BROMIDE [Concomitant]
  6. PREDNISOLONE [Concomitant]
  7. BUDESONIDE [Concomitant]
  8. BENDROFLUAZIDE [Concomitant]
     Dosage: 2.5 MG, 1X/DAY
  9. FORMOTEROL [Concomitant]

REACTIONS (9)
  - PEAK EXPIRATORY FLOW RATE DECREASED [None]
  - PAIN [None]
  - ASTHENIA [None]
  - CHEST DISCOMFORT [None]
  - STRESS [None]
  - BLOOD PRESSURE INCREASED [None]
  - MALAISE [None]
  - SLEEP DISORDER [None]
  - HERPES ZOSTER [None]
